FAERS Safety Report 26168921 (Version 1)
Quarter: 2025Q4

REPORT INFORMATION
  Report Type: Spontaneous
  Country: US (occurrence: US)
  Receive Date: 20251217
  Receipt Date: 20251217
  Transmission Date: 20260117
  Serious: Yes (Hospitalization)
  Sender: MYLAN
  Company Number: US-MYLANLABS-2025M1106842

PATIENT
  Age: 60 Year
  Sex: Male

DRUGS (2)
  1. DIAZEPAM [Suspect]
     Active Substance: DIAZEPAM
     Indication: Malignant catatonia
     Dosage: 10 MILLIGRAM, Q6H
  2. METHYLPREDNISOLONE [Suspect]
     Active Substance: METHYLPREDNISOLONE
     Indication: Rash
     Dosage: UNK, TWO DOSES

REACTIONS (2)
  - Malignant catatonia [Recovered/Resolved]
  - Therapy non-responder [Unknown]
